FAERS Safety Report 8786071 (Version 1)
Quarter: 2012Q4

REPORT INFORMATION
  Report Type: 
  Country: US (occurrence: US)
  Receive Date: 20120914
  Receipt Date: 20120914
  Transmission Date: 20130627
  Serious: Yes (Hospitalization, Other)
  Sender: FDA-Public Use
  Company Number: US-VERTEX PHARMACEUTICAL INC.-2012-020992

PATIENT
  Sex: Male
  Weight: 119 kg

DRUGS (12)
  1. VX-950 [Suspect]
     Indication: HEPATITIS C
     Dosage: 750 mg, tid
     Route: 048
     Dates: start: 2012
  2. PEGASYS [Concomitant]
     Indication: HEPATITIS C
     Dosage: 180 ?g, UNK
     Route: 058
     Dates: start: 2012
  3. RIBASPHERE [Concomitant]
     Indication: HEPATITIS C
     Dosage: 3 DF, tid
     Dates: start: 2012
  4. JANUMET [Concomitant]
     Dosage: UNK, qd
  5. PROTONIX DR [Concomitant]
     Dosage: UNK, qd
  6. NIASPAN ER [Concomitant]
     Dosage: UNK, qd
  7. CLARINEX                           /01202601/ [Concomitant]
     Dosage: 5 mg, UNK
  8. NADOLOL [Concomitant]
     Dosage: 20 mg, UNK
  9. ASPIRIN [Concomitant]
     Dosage: 81 mg, UNK
  10. GABAPENTIN [Concomitant]
     Dosage: 100 mg, UNK
  11. GLIPIZIDE [Concomitant]
     Dosage: 10 mg, UNK
  12. ZETIA [Concomitant]
     Dosage: 10 mg, UNK

REACTIONS (2)
  - Ammonia abnormal [Unknown]
  - Loss of consciousness [Unknown]
